FAERS Safety Report 5106829-9 (Version None)
Quarter: 2006Q3

REPORT INFORMATION
  Report Type: 
  Country: None (occurrence: None)
  Receive Date: 20060918
  Receipt Date: 20060906
  Transmission Date: 20061208
  Serious: Yes (Disabling)
  Sender: FDA-Public Use
  Company Number: JP-BRISTOL-MYERS SQUIBB COMPANY-13508882

PATIENT
  Age: 82 Year
  Sex: Male

DRUGS (10)
  1. GATIFLO [Suspect]
     Indication: LUNG INFECTION
     Route: 048
     Dates: start: 20060821, end: 20060824
  2. RYTHMODAN R [Concomitant]
     Route: 048
     Dates: end: 20060828
  3. NITOROL [Concomitant]
     Route: 048
  4. BLOPRESS [Concomitant]
     Route: 048
  5. GASTER D [Concomitant]
     Route: 048
  6. HOKUNALIN [Concomitant]
     Route: 062
  7. SPIRIVA [Concomitant]
     Route: 048
  8. CLARITHROMYCIN [Concomitant]
     Route: 048
  9. MAGNESIUM OXIDE [Concomitant]
  10. ENSURE [Concomitant]

REACTIONS (1)
  - HYPOGLYCAEMIA [None]
